FAERS Safety Report 7591899-9 (Version None)
Quarter: 2011Q3

REPORT INFORMATION
  Report Type: 
  Country: None (occurrence: None)
  Receive Date: 20110706
  Receipt Date: 20110624
  Transmission Date: 20111222
  Serious: Yes (Other)
  Sender: FDA-Public Use
  Company Number: FR-AMGEN-FRASP2011021631

PATIENT
  Age: 52 Year
  Sex: Female
  Weight: 74 kg

DRUGS (7)
  1. PREDNISONE [Concomitant]
     Indication: RHEUMATOID ARTHRITIS
     Dosage: 5 MG, 1X/DAY
     Route: 048
     Dates: start: 20010801
  2. LANSOPRAZOLE [Concomitant]
     Indication: DYSPEPSIA
     Dosage: 15 MG, 1X/DAY
     Route: 048
     Dates: start: 20050101
  3. ENBREL [Suspect]
     Dosage: UNK
     Dates: start: 20101201, end: 20110221
  4. ENBREL [Suspect]
     Dosage: UNK
     Dates: end: 20100901
  5. PAROXETINE HCL [Concomitant]
     Indication: DEPRESSION
     Dosage: 20 MG, 1X/DAY
     Route: 048
     Dates: start: 20000101
  6. ENBREL [Suspect]
     Indication: RHEUMATOID ARTHRITIS
     Dosage: UNK
     Dates: start: 20080412, end: 20100821
  7. HUMIRA [Suspect]

REACTIONS (5)
  - SEPTAL PANNICULITIS [None]
  - LIPASE INCREASED [None]
  - SEPSIS [None]
  - FOOT OPERATION [None]
  - DERMATITIS ALLERGIC [None]
